FAERS Safety Report 4644525-2 (Version None)
Quarter: 2005Q2

REPORT INFORMATION
  Report Type: 
  Country: None (occurrence: None)
  Receive Date: 20050426
  Receipt Date: 20050414
  Transmission Date: 20051028
  Serious: Yes (Death, Hospitalization)
  Sender: FDA-Public Use
  Company Number: JP-JNJFOC-20050305666

PATIENT
  Sex: Male
  Weight: 34 kg

DRUGS (9)
  1. REMICADE [Suspect]
     Route: 042
  2. REMICADE [Suspect]
     Route: 042
  3. REMICADE [Suspect]
     Indication: CROHN'S DISEASE
     Route: 042
  4. LEUKERIN [Suspect]
     Indication: CROHN'S DISEASE
     Route: 049
  5. PREDNISOLONE [Concomitant]
     Indication: CROHN'S DISEASE
     Route: 049
  6. PENTASA [Concomitant]
     Indication: CROHN'S DISEASE
     Route: 049
  7. ALFAROL [Concomitant]
     Indication: OSTEOPOROSIS
     Route: 049
  8. FERROMIA [Concomitant]
     Route: 049
  9. EPADEL S [Concomitant]
     Route: 049

REACTIONS (4)
  - EPSTEIN-BARR VIRUS INFECTION [None]
  - HISTIOCYTOSIS HAEMATOPHAGIC [None]
  - PANCYTOPENIA [None]
  - PYREXIA [None]
